FAERS Safety Report 6702974-2 (Version None)
Quarter: 2010Q2

REPORT INFORMATION
  Report Type: 
  Country: None (occurrence: None)
  Receive Date: 20100429
  Receipt Date: 20100429
  Transmission Date: 20101027
  Serious: Yes (Life-Threatening, Hospitalization)
  Sender: FDA-Public Use
  Company Number: None

PATIENT
  Age: 60 Year
  Sex: Female
  Weight: 47.2 kg

DRUGS (1)
  1. ISOVUE-300 [Suspect]
     Indication: COMPUTERISED TOMOGRAM
     Dosage: 110 ML IV
     Route: 042
     Dates: start: 20090323

REACTIONS (4)
  - DYSARTHRIA [None]
  - OEDEMA MOUTH [None]
  - ORBITAL OEDEMA [None]
  - URTICARIA [None]
